FAERS Safety Report 6638716-9 (Version None)
Quarter: 2010Q1

REPORT INFORMATION
  Report Type: 
  Country: None (occurrence: None)
  Receive Date: 20100316
  Receipt Date: 20100316
  Transmission Date: 20100710
  Serious: Yes (Death, Hospitalization)
  Sender: FDA-Public Use
  Company Number: None

PATIENT
  Sex: Male

DRUGS (1)
  1. FOLOTYN [Suspect]
     Indication: PERIPHERAL T-CELL LYMPHOMA UNSPECIFIED

REACTIONS (1)
  - INTESTINAL ISCHAEMIA [None]
